FAERS Safety Report 12889306 (Version 2)
Quarter: 2016Q4

REPORT INFORMATION
  Report Type: Spontaneous
  Country: US (occurrence: US)
  Receive Date: 20161027
  Receipt Date: 20161103
  Transmission Date: 20170207
  Serious: No
  Sender: FDA-Public Use
  Company Number: US-HORIZON-ACT-0247-2016

PATIENT
  Age: 12 Year
  Sex: Male

DRUGS (3)
  1. BACTRIM [Concomitant]
     Active Substance: SULFAMETHOXAZOLE\TRIMETHOPRIM
  2. ACTIMMUNE [Suspect]
     Active Substance: INTERFERON GAMMA-1B
     Indication: CHRONIC GRANULOMATOUS DISEASE
     Dosage: AT NIGHT CLOSE TO BEDTIME
     Dates: start: 20090622
  3. ITRACONAZOLE. [Concomitant]
     Active Substance: ITRACONAZOLE

REACTIONS (4)
  - Injection site erythema [Unknown]
  - Injection site pain [Unknown]
  - Hyperhidrosis [Unknown]
  - Pyrexia [Unknown]
